FAERS Safety Report 23590726 (Version 1)
Quarter: 2024Q1

REPORT INFORMATION
  Report Type: Spontaneous
  Country: US (occurrence: US)
  Receive Date: 20240304
  Receipt Date: 20240304
  Transmission Date: 20240410
  Serious: No
  Sender: FDA-Public Use
  Company Number: US-ELI_LILLY_AND_COMPANY-US202402017322

PATIENT
  Age: 34 Year
  Sex: Female

DRUGS (2)
  1. TALTZ [Suspect]
     Active Substance: IXEKIZUMAB
     Indication: Psoriasis
     Dosage: 80 MG, OTHER, EVERY 4 WEEKS
     Route: 058
     Dates: end: 20240123
  2. TALTZ [Suspect]
     Active Substance: IXEKIZUMAB
     Dosage: 80 MG, OTHER, EVERY 4 WEEKS
     Route: 058
     Dates: start: 202401

REACTIONS (3)
  - COVID-19 [Unknown]
  - Psoriasis [Unknown]
  - Arthralgia [Unknown]

NARRATIVE: CASE EVENT DATE: 20240123
